FAERS Safety Report 5322590-7 (Version None)
Quarter: 2007Q2

REPORT INFORMATION
  Report Type: 
  Country: None (occurrence: None)
  Receive Date: 20070507
  Receipt Date: 20070501
  Transmission Date: 20071010
  Serious: Yes (Other)
  Sender: FDA-Public Use
  Company Number: 2007SP004193

PATIENT
  Age: 27 Year
  Sex: Female
  Weight: 73.4827 kg

DRUGS (5)
  1. PEG-INTRON [Suspect]
     Indication: HEPATITIS C
     Dosage: 80 MCG
     Dates: start: 20070202, end: 20070301
  2. PEG-INTRON [Suspect]
     Indication: HEPATITIS C
     Dosage: 80 MCG
     Dates: start: 20070308
  3. REBETOL [Suspect]
     Indication: HEPATITIS C
     Dosage: 1000 MG
     Dates: start: 20070227, end: 20070301
  4. ACYCLOVIR [Concomitant]
  5. BENADRYL /0000402/ [Concomitant]

REACTIONS (8)
  - DIZZINESS [None]
  - DRUG HYPERSENSITIVITY [None]
  - GASTRITIS [None]
  - HAEMATEMESIS [None]
  - HEADACHE [None]
  - HYPERSENSITIVITY [None]
  - MUSCLE SPASMS [None]
  - PHARYNGOLARYNGEAL PAIN [None]
